FAERS Safety Report 9167696 (Version 3)
Quarter: 2013Q4

REPORT INFORMATION
  Report Type: Spontaneous
  Country: BR (occurrence: BR)
  Receive Date: 20130318
  Receipt Date: 20131021
  Transmission Date: 20140711
  Serious: Yes (Hospitalization)
  Sender: FDA-Public Use
  Company Number: PHHY2013BR025938

PATIENT
  Sex: Female
  Weight: 64 kg

DRUGS (7)
  1. DIOVAN [Suspect]
     Indication: HYPERTENSION
     Dosage: 1 DF (320MG) DAILY
     Route: 048
  2. DIOVAN [Suspect]
     Dosage: 1 DF (320MG) DAILY
     Route: 048
  3. SELOZOK [Concomitant]
     Indication: HYPERTENSION
     Dosage: 1 DF (50MG) A DAY
     Route: 048
  4. ANCORON [Concomitant]
     Indication: ARRHYTHMIA
     Dosage: 1 DF A DAY
     Route: 048
  5. AAS [Concomitant]
     Indication: ANTICOAGULANT THERAPY
     Dosage: 1 DF
     Route: 048
  6. OMEPRAZOLE [Concomitant]
     Indication: GASTROINTESTINAL DISORDER
     Dosage: 1 DF (IN FASTING)
     Route: 048
  7. BROMAZEPAM [Concomitant]
     Dosage: 3 MG, UNK

REACTIONS (5)
  - Cerebrovascular accident [Recovered/Resolved]
  - Hemiplegia [Not Recovered/Not Resolved]
  - Aphasia [Not Recovered/Not Resolved]
  - Blood pressure increased [Recovered/Resolved]
  - Diarrhoea [Recovering/Resolving]
